FAERS Safety Report 9421478 (Version 3)
Quarter: 2013Q3

REPORT INFORMATION
  Report Type: Spontaneous
  Country: US (occurrence: US)
  Receive Date: 20130726
  Receipt Date: 20130902
  Transmission Date: 20140515
  Serious: Yes (Life-Threatening, Hospitalization, Other)
  Sender: FDA-Public Use
  Company Number: US-009507513-1307USA013289

PATIENT
  Age: 51 Year
  Sex: Female
  Weight: 57.6 kg

DRUGS (2)
  1. PEGINTRON [Suspect]
     Indication: HEPATITIS C
     Dosage: 80 MICROGRAM, QW
     Dates: start: 20130702, end: 20130702
  2. REBETOL [Suspect]
     Indication: HEPATITIS C
     Dosage: 400 MG, QPM
     Route: 048
     Dates: start: 20130702, end: 20130702

REACTIONS (8)
  - Pneumonia [Recovered/Resolved]
  - Back pain [Not Recovered/Not Resolved]
  - Vomiting [Not Recovered/Not Resolved]
  - Musculoskeletal pain [Not Recovered/Not Resolved]
  - Headache [Not Recovered/Not Resolved]
  - Hepatic pain [Not Recovered/Not Resolved]
  - Pain in extremity [Not Recovered/Not Resolved]
  - Asthenia [Not Recovered/Not Resolved]
